FAERS Safety Report 18986372 (Version 1)
Quarter: 2021Q1

REPORT INFORMATION
  Report Type: Spontaneous
  Country: US (occurrence: US)
  Receive Date: 20210308
  Receipt Date: 20210308
  Transmission Date: 20210420
  Serious: No
  Sender: FDA-Public Use
  Company Number: None

PATIENT
  Age: 59 Year
  Sex: Female

DRUGS (22)
  1. VITAMIN D [Concomitant]
     Active Substance: VITAMIN D NOS
  2. VITAMIN B12 [Concomitant]
     Active Substance: CYANOCOBALAMIN
  3. RENVELA [Concomitant]
     Active Substance: SEVELAMER CARBONATE
  4. ASPIRIN. [Concomitant]
     Active Substance: ASPIRIN
  5. NEPHRO VITE RX [Concomitant]
     Active Substance: ASCORBIC ACID\BIOTIN\CALCIUM PANTOTHENATE\CYANOCOBALAMIN\FOLIC ACID\NIACINAMIDE\PYRIDOXINE HYDROCHLORIDE\RIBOFLAVIN\THIAMINE MONONITRATE
  6. METOPROLOL. [Concomitant]
     Active Substance: METOPROLOL
  7. CYCLOBENZAPRINE. [Concomitant]
     Active Substance: CYCLOBENZAPRINE
  8. TYLENOL [Concomitant]
     Active Substance: ACETAMINOPHEN
  9. LOSARTAN. [Concomitant]
     Active Substance: LOSARTAN
  10. AMLODIPINE [Concomitant]
     Active Substance: AMLODIPINE BESYLATE
  11. HYDRALAZINE [Concomitant]
     Active Substance: HYDRALAZINE HYDROCHLORIDE
  12. CALCITRIOL. [Concomitant]
     Active Substance: CALCITRIOL
  13. ALBUMIN FREE SUCCINATE ER [Concomitant]
  14. NORCO [Concomitant]
     Active Substance: ACETAMINOPHEN\HYDROCODONE BITARTRATE
  15. DOCUSATE SODIUM. [Concomitant]
     Active Substance: DOCUSATE SODIUM
  16. NITROGLYCERIN TRANSDERMAL [Concomitant]
  17. ARANESP [Concomitant]
     Active Substance: DARBEPOETIN ALFA
  18. CINACALCET HCL 60 MG [Suspect]
     Active Substance: CINACALCET HYDROCHLORIDE
     Indication: HYPERPARATHYROIDISM SECONDARY
     Route: 048
     Dates: start: 201902
  19. TOPIRAMTE [Concomitant]
     Active Substance: TOPIRAMATE
  20. HEPARIN SODIUM/D5W [Concomitant]
  21. DIPHENOXYLATE/ATROPINE [Concomitant]
     Active Substance: ATROPINE\DIPHENOXYLATE
  22. CLONIDINE HCL [Concomitant]
     Active Substance: CLONIDINE HYDROCHLORIDE

REACTIONS (1)
  - Cardiac operation [None]

NARRATIVE: CASE EVENT DATE: 20210305
